FAERS Safety Report 6044658-2 (Version None)
Quarter: 2009Q1

REPORT INFORMATION
  Report Type: 
  Country: None (occurrence: None)
  Receive Date: 20090120
  Receipt Date: 20090109
  Transmission Date: 20090719
  Serious: Yes (Life-Threatening, Hospitalization)
  Sender: FDA-Public Use
  Company Number: SE-ROCHE-607222

PATIENT
  Age: 65 Year
  Sex: Female

DRUGS (4)
  1. CELLCEPT [Suspect]
     Indication: RHEUMATOID ARTHRITIS
     Dosage: DOSAGE REGIMEN: 1X2
     Route: 048
     Dates: start: 20081205, end: 20081218
  2. TROMBYL [Concomitant]
     Route: 048
  3. SANDIMMUNE [Concomitant]
     Indication: RHEUMATOID ARTHRITIS
  4. SANDIMMUNE [Concomitant]
     Dosage: DOSAGE INCREASED
     Dates: end: 20080101

REACTIONS (4)
  - ABDOMINAL PAIN UPPER [None]
  - C-REACTIVE PROTEIN INCREASED [None]
  - GASTROINTESTINAL HAEMORRHAGE [None]
  - MALAISE [None]
